FAERS Safety Report 16465171 (Version 1)
Quarter: 2019Q2

REPORT INFORMATION
  Report Type: Spontaneous
  Country: PL (occurrence: PL)
  Receive Date: 20190621
  Receipt Date: 20190621
  Transmission Date: 20190711
  Serious: Yes (Other)
  Sender: FDA-Public Use
  Company Number: PL-BAUSCH-BL-2019-017470

PATIENT
  Age: 43 Year
  Sex: Male

DRUGS (6)
  1. DOXORUBICIN [Suspect]
     Active Substance: DOXORUBICIN
     Indication: PRODUCT USED FOR UNKNOWN INDICATION
     Route: 065
  2. RITUXIMAB. [Suspect]
     Active Substance: RITUXIMAB
     Indication: PRODUCT USED FOR UNKNOWN INDICATION
     Dosage: R-CHOP 8 CYCLES
     Route: 065
     Dates: start: 20150724
  3. RITUXIMAB. [Suspect]
     Active Substance: RITUXIMAB
     Dosage: SUPPORTING TREATMENT WITH RITUXIMAB 9 CYCLES
     Route: 065
     Dates: start: 20160405
  4. CYCLOPHOSPHAMIDE. [Suspect]
     Active Substance: CYCLOPHOSPHAMIDE
     Indication: PRODUCT USED FOR UNKNOWN INDICATION
     Route: 065
  5. PREDNISOLONE. [Suspect]
     Active Substance: PREDNISOLONE
     Indication: PRODUCT USED FOR UNKNOWN INDICATION
     Route: 065
  6. VINCRISTINE [Suspect]
     Active Substance: VINCRISTINE
     Indication: PRODUCT USED FOR UNKNOWN INDICATION
     Route: 065

REACTIONS (7)
  - Retroperitoneal lymphadenopathy [Unknown]
  - Polyneuropathy [Unknown]
  - Hypoaesthesia [Unknown]
  - Lymphoedema [Unknown]
  - B-cell lymphoma [Unknown]
  - Drug resistance [Unknown]
  - Gastrointestinal disorder [Unknown]
